FAERS Safety Report 5339338-2 (Version None)
Quarter: 2007Q2

REPORT INFORMATION
  Report Type: 
  Country: None (occurrence: None)
  Receive Date: 20070525
  Receipt Date: 20070515
  Transmission Date: 20071010
  Serious: Yes (Other)
  Sender: FDA-Public Use
  Company Number: 2007SP009517

PATIENT
  Age: 40 Year
  Sex: Female

DRUGS (1)
  1. LORATADINE [Suspect]
     Indication: SEASONAL ALLERGY

REACTIONS (3)
  - LYMPHADENOPATHY [None]
  - SJOGREN'S SYNDROME [None]
  - SKIN DISORDER [None]
